FAERS Safety Report 11838733 (Version 1)
Quarter: 2015Q4

REPORT INFORMATION
  Report Type: Spontaneous
  Country: US (occurrence: US)
  Receive Date: 20151215
  Receipt Date: 20151215
  Transmission Date: 20160305
  Serious: No
  Sender: FDA-Public Use
  Company Number: US-SA-2015SA089120

PATIENT
  Age: 50 Year
  Sex: Female

DRUGS (1)
  1. FERRLECIT [Suspect]
     Active Substance: SODIUM FERRIC GLUCONATE COMPLEX
     Indication: ANAEMIA
     Dosage: 250MG / 250ML ?NS, ONCE OVER ?TWO HOURS? FERRLECIT INFUSION
     Route: 065
     Dates: start: 20150602, end: 20150612

REACTIONS (5)
  - Headache [Unknown]
  - Dysphonia [Unknown]
  - Pain in jaw [Unknown]
  - Chest pain [Unknown]
  - Dyspnoea [Unknown]

NARRATIVE: CASE EVENT DATE: 20150612
